FAERS Safety Report 4632841-X (Version None)
Quarter: 2005Q2

REPORT INFORMATION
  Report Type: 
  Country: None (occurrence: None)
  Receive Date: 20050412
  Receipt Date: 20041015
  Transmission Date: 20051028
  Serious: Yes (Other)
  Sender: FDA-Public Use
  Company Number: PHBS2004JP13835

PATIENT
  Age: 17 Year
  Sex: Male
  Weight: 56 kg

DRUGS (9)
  1. DIFLUCAN [Concomitant]
     Indication: PYREXIA
     Dosage: 200 MG/DAY
     Route: 048
     Dates: start: 20040924
  2. BIOFERMIN [Concomitant]
     Indication: DIARRHOEA
     Dosage: 3 G/DAY
     Route: 048
     Dates: start: 20040923
  3. GASTER D [Concomitant]
     Indication: ABDOMINAL PAIN UPPER
     Dosage: 40 MG/DAY
     Route: 048
     Dates: start: 20040917
  4. MUCOSTA [Concomitant]
     Indication: ABDOMINAL PAIN UPPER
     Dosage: 300 MG/DAY
     Route: 048
     Dates: start: 20040917
  5. PENTCILLIN [Concomitant]
     Indication: PYREXIA
     Dosage: 6 G/DAY
     Dates: start: 20040917, end: 20040927
  6. MODACIN [Concomitant]
     Indication: PYREXIA
     Dosage: 4 G/DAY
     Dates: start: 20040928, end: 20041005
  7. GLEEVEC [Suspect]
     Indication: BLAST CRISIS IN MYELOGENOUS LEUKAEMIA
     Dosage: 600 MG/DAY
     Route: 048
     Dates: start: 20041027, end: 20041108
  8. GLEEVEC [Suspect]
     Dosage: 400 MG, QD
     Route: 048
     Dates: start: 20040917, end: 20041016
  9. GLEEVEC [Suspect]
     Dosage: 200 MG/DAY
     Route: 048
     Dates: start: 20041017, end: 20041023

REACTIONS (4)
  - ALLOGENIC BONE MARROW TRANSPLANTATION THERAPY [None]
  - BLOOD BILIRUBIN UNCONJUGATED INCREASED [None]
  - HAEMOLYSIS [None]
  - PRURITUS [None]
